FAERS Safety Report 7190345-7 (Version None)
Quarter: 2010Q4

REPORT INFORMATION
  Report Type: 
  Country: None (occurrence: None)
  Receive Date: 20101221
  Receipt Date: 20101221
  Transmission Date: 20110411
  Serious: Yes (Other)
  Sender: FDA-Public Use
  Company Number: None

PATIENT
  Age: 61 Year
  Sex: Female
  Weight: 72.5755 kg

DRUGS (1)
  1. AUROBINDO CEFTIN [Suspect]
     Indication: URINARY TRACT INFECTION
     Dosage: 1 TABLET 2 TIMES A DAY
     Dates: start: 20101208

REACTIONS (3)
  - DIARRHOEA [None]
  - NAUSEA [None]
  - PRODUCT TASTE ABNORMAL [None]
